FAERS Safety Report 4864311-8 (Version None)
Quarter: 2005Q4

REPORT INFORMATION
  Report Type: 
  Country: None (occurrence: None)
  Receive Date: 20051222
  Receipt Date: 20051005
  Transmission Date: 20060501
  Serious: Yes (Hospitalization, Disabling)
  Sender: FDA-Public Use
  Company Number: US-MERCK-0510USA04477

PATIENT
  Age: 23 Year
  Sex: Male
  Weight: 90 kg

DRUGS (2)
  1. VIOXX [Suspect]
     Indication: JOINT SWELLING
     Route: 048
     Dates: start: 20040514, end: 20040514
  2. COUMADIN [Concomitant]
     Route: 065

REACTIONS (21)
  - ANTIPHOSPHOLIPID SYNDROME [None]
  - BLOOD GLUCOSE INCREASED [None]
  - CARDIOVASCULAR DISORDER [None]
  - CEREBROVASCULAR ACCIDENT [None]
  - CONSTIPATION [None]
  - DEPRESSION [None]
  - FAECAL INCONTINENCE [None]
  - HAEMATURIA [None]
  - HAEMORRHAGIC STROKE [None]
  - ISCHAEMIC STROKE [None]
  - MENTAL IMPAIRMENT [None]
  - MENTAL STATUS CHANGES [None]
  - MYELITIS TRANSVERSE [None]
  - PARAPLEGIA [None]
  - PLASMAPHERESIS [None]
  - PSEUDOMONAS INFECTION [None]
  - PULMONARY EMBOLISM [None]
  - SYSTEMIC LUPUS ERYTHEMATOSUS [None]
  - THROMBOPHLEBITIS SUPERFICIAL [None]
  - ULCER [None]
  - URINARY TRACT INFECTION [None]
